FAERS Safety Report 25174542 (Version 1)
Quarter: 2025Q2

REPORT INFORMATION
  Report Type: Spontaneous
  Country: FR (occurrence: FR)
  Receive Date: 20250408
  Receipt Date: 20250408
  Transmission Date: 20250716
  Serious: Yes (Hospitalization)
  Sender: MYLAN
  Company Number: None

PATIENT
  Age: 1 Day
  Sex: Male
  Weight: 2.3 kg

DRUGS (40)
  1. LEVETIRACETAM [Suspect]
     Active Substance: LEVETIRACETAM
     Indication: Idiopathic generalised epilepsy
     Dosage: 500 MILLIGRAM, Q8H
     Dates: start: 20240624, end: 20241225
  2. LEVETIRACETAM [Suspect]
     Active Substance: LEVETIRACETAM
     Dosage: 500 MILLIGRAM, Q8H
     Dates: start: 20240624, end: 20241225
  3. LEVETIRACETAM [Suspect]
     Active Substance: LEVETIRACETAM
     Dosage: 500 MILLIGRAM, Q8H
     Route: 064
     Dates: start: 20240624, end: 20241225
  4. LEVETIRACETAM [Suspect]
     Active Substance: LEVETIRACETAM
     Dosage: 500 MILLIGRAM, Q8H
     Route: 064
     Dates: start: 20240624, end: 20241225
  5. LEVETIRACETAM [Suspect]
     Active Substance: LEVETIRACETAM
     Dosage: 500 MILLIGRAM, Q8H
     Dates: start: 20240624, end: 20241225
  6. LEVETIRACETAM [Suspect]
     Active Substance: LEVETIRACETAM
     Dosage: 500 MILLIGRAM, Q8H
     Dates: start: 20240624, end: 20241225
  7. LEVETIRACETAM [Suspect]
     Active Substance: LEVETIRACETAM
     Dosage: 500 MILLIGRAM, Q8H
     Route: 064
     Dates: start: 20240624, end: 20241225
  8. LEVETIRACETAM [Suspect]
     Active Substance: LEVETIRACETAM
     Dosage: 500 MILLIGRAM, Q8H
     Route: 064
     Dates: start: 20240624, end: 20241225
  9. SERTRALINE [Suspect]
     Active Substance: SERTRALINE HYDROCHLORIDE
     Indication: Post-traumatic stress disorder
     Dosage: 500 MILLIGRAM, Q8H
     Dates: start: 20240510, end: 20241225
  10. SERTRALINE [Suspect]
     Active Substance: SERTRALINE HYDROCHLORIDE
     Dosage: 500 MILLIGRAM, Q8H
     Dates: start: 20240510, end: 20241225
  11. SERTRALINE [Suspect]
     Active Substance: SERTRALINE HYDROCHLORIDE
     Dosage: 500 MILLIGRAM, Q8H
     Route: 064
     Dates: start: 20240510, end: 20241225
  12. SERTRALINE [Suspect]
     Active Substance: SERTRALINE HYDROCHLORIDE
     Dosage: 500 MILLIGRAM, Q8H
     Route: 064
     Dates: start: 20240510, end: 20241225
  13. SERTRALINE [Suspect]
     Active Substance: SERTRALINE HYDROCHLORIDE
     Dosage: 500 MILLIGRAM, Q8H
     Dates: start: 20240510, end: 20241225
  14. SERTRALINE [Suspect]
     Active Substance: SERTRALINE HYDROCHLORIDE
     Dosage: 500 MILLIGRAM, Q8H
     Dates: start: 20240510, end: 20241225
  15. SERTRALINE [Suspect]
     Active Substance: SERTRALINE HYDROCHLORIDE
     Dosage: 500 MILLIGRAM, Q8H
     Route: 064
     Dates: start: 20240510, end: 20241225
  16. SERTRALINE [Suspect]
     Active Substance: SERTRALINE HYDROCHLORIDE
     Dosage: 500 MILLIGRAM, Q8H
     Route: 064
     Dates: start: 20240510, end: 20241225
  17. VALPROATE SODIUM [Suspect]
     Active Substance: VALPROATE SODIUM
     Indication: Idiopathic generalised epilepsy
     Dosage: 500 MILLIGRAM, BID (500 MG MORNING AND EVENING)(, EXTENDED-RELEASE SCORED FILM-COATED TABLET  )
     Dates: start: 20240510, end: 20240625
  18. VALPROATE SODIUM [Suspect]
     Active Substance: VALPROATE SODIUM
     Dosage: 500 MILLIGRAM, BID (500 MG MORNING AND EVENING)(, EXTENDED-RELEASE SCORED FILM-COATED TABLET  )
     Dates: start: 20240510, end: 20240625
  19. VALPROATE SODIUM [Suspect]
     Active Substance: VALPROATE SODIUM
     Dosage: 500 MILLIGRAM, BID (500 MG MORNING AND EVENING)(, EXTENDED-RELEASE SCORED FILM-COATED TABLET  )
     Route: 064
     Dates: start: 20240510, end: 20240625
  20. VALPROATE SODIUM [Suspect]
     Active Substance: VALPROATE SODIUM
     Dosage: 500 MILLIGRAM, BID (500 MG MORNING AND EVENING)(, EXTENDED-RELEASE SCORED FILM-COATED TABLET  )
     Route: 064
     Dates: start: 20240510, end: 20240625
  21. VALPROATE SODIUM [Suspect]
     Active Substance: VALPROATE SODIUM
     Dosage: 500 MILLIGRAM, BID (500 MG MORNING AND EVENING)(, EXTENDED-RELEASE SCORED FILM-COATED TABLET  )
     Dates: start: 20240510, end: 20240625
  22. VALPROATE SODIUM [Suspect]
     Active Substance: VALPROATE SODIUM
     Dosage: 500 MILLIGRAM, BID (500 MG MORNING AND EVENING)(, EXTENDED-RELEASE SCORED FILM-COATED TABLET  )
     Dates: start: 20240510, end: 20240625
  23. VALPROATE SODIUM [Suspect]
     Active Substance: VALPROATE SODIUM
     Dosage: 500 MILLIGRAM, BID (500 MG MORNING AND EVENING)(, EXTENDED-RELEASE SCORED FILM-COATED TABLET  )
     Route: 064
     Dates: start: 20240510, end: 20240625
  24. VALPROATE SODIUM [Suspect]
     Active Substance: VALPROATE SODIUM
     Dosage: 500 MILLIGRAM, BID (500 MG MORNING AND EVENING)(, EXTENDED-RELEASE SCORED FILM-COATED TABLET  )
     Route: 064
     Dates: start: 20240510, end: 20240625
  25. CLOBAZAM [Suspect]
     Active Substance: CLOBAZAM
     Indication: Idiopathic generalised epilepsy
     Dosage: 10 MILLIGRAM, Q8H (SCORED TABLET)
     Dates: start: 20240624, end: 20241013
  26. CLOBAZAM [Suspect]
     Active Substance: CLOBAZAM
     Dosage: 10 MILLIGRAM, Q8H (SCORED TABLET)
     Dates: start: 20240624, end: 20241013
  27. CLOBAZAM [Suspect]
     Active Substance: CLOBAZAM
     Dosage: 10 MILLIGRAM, Q8H (SCORED TABLET)
     Route: 064
     Dates: start: 20240624, end: 20241013
  28. CLOBAZAM [Suspect]
     Active Substance: CLOBAZAM
     Dosage: 10 MILLIGRAM, Q8H (SCORED TABLET)
     Route: 064
     Dates: start: 20240624, end: 20241013
  29. CLOBAZAM [Suspect]
     Active Substance: CLOBAZAM
     Dosage: 10 MILLIGRAM, Q8H (SCORED TABLET)
     Dates: start: 20240624, end: 20241013
  30. CLOBAZAM [Suspect]
     Active Substance: CLOBAZAM
     Dosage: 10 MILLIGRAM, Q8H (SCORED TABLET)
     Dates: start: 20240624, end: 20241013
  31. CLOBAZAM [Suspect]
     Active Substance: CLOBAZAM
     Dosage: 10 MILLIGRAM, Q8H (SCORED TABLET)
     Route: 064
     Dates: start: 20240624, end: 20241013
  32. CLOBAZAM [Suspect]
     Active Substance: CLOBAZAM
     Dosage: 10 MILLIGRAM, Q8H (SCORED TABLET)
     Route: 064
     Dates: start: 20240624, end: 20241013
  33. CLOBAZAM [Suspect]
     Active Substance: CLOBAZAM
     Dosage: 5 MILLIGRAM, BID ((SCORED TABLET)
     Dates: start: 20241014, end: 20241225
  34. CLOBAZAM [Suspect]
     Active Substance: CLOBAZAM
     Dosage: 5 MILLIGRAM, BID ((SCORED TABLET)
     Route: 064
     Dates: start: 20241014, end: 20241225
  35. CLOBAZAM [Suspect]
     Active Substance: CLOBAZAM
     Dosage: 5 MILLIGRAM, BID ((SCORED TABLET)
     Dates: start: 20241014, end: 20241225
  36. CLOBAZAM [Suspect]
     Active Substance: CLOBAZAM
     Dosage: 5 MILLIGRAM, BID ((SCORED TABLET)
     Dates: start: 20241014, end: 20241225
  37. CLOBAZAM [Suspect]
     Active Substance: CLOBAZAM
     Dosage: 5 MILLIGRAM, BID ((SCORED TABLET)
     Route: 064
     Dates: start: 20241014, end: 20241225
  38. CLOBAZAM [Suspect]
     Active Substance: CLOBAZAM
     Dosage: 5 MILLIGRAM, BID ((SCORED TABLET)
     Route: 064
     Dates: start: 20241014, end: 20241225
  39. CLOBAZAM [Suspect]
     Active Substance: CLOBAZAM
     Dosage: 5 MILLIGRAM, BID ((SCORED TABLET)
     Dates: start: 20241014, end: 20241225
  40. CLOBAZAM [Suspect]
     Active Substance: CLOBAZAM
     Dosage: 5 MILLIGRAM, BID ((SCORED TABLET)
     Route: 064
     Dates: start: 20241014, end: 20241225

REACTIONS (2)
  - Premature baby [Recovered/Resolved]
  - Foetal exposure during pregnancy [Recovered/Resolved]

NARRATIVE: CASE EVENT DATE: 20241225
